FAERS Safety Report 6262468-8 (Version None)
Quarter: 2009Q3

REPORT INFORMATION
  Report Type: 
  Country: None (occurrence: None)
  Receive Date: 20090709
  Receipt Date: 20090629
  Transmission Date: 20100115
  Serious: Yes (Other)
  Sender: FDA-Public Use
  Company Number: CN-GENENTECH-285984

PATIENT
  Age: 34 Year
  Sex: Female

DRUGS (3)
  1. HERCEPTIN [Suspect]
     Indication: BREAST CANCER
     Dosage: 440 MG, SINGLE
     Route: 041
     Dates: start: 20090516
  2. HERCEPTIN [Suspect]
     Dosage: 324 MG, Q3W
     Route: 041
     Dates: start: 20090606, end: 20090606
  3. TAXOTERE [Suspect]
     Indication: BREAST CANCER
     Dosage: UNK MG, UNK
     Route: 041
     Dates: start: 20090517

REACTIONS (2)
  - ALANINE AMINOTRANSFERASE INCREASED [None]
  - ASPARTATE AMINOTRANSFERASE INCREASED [None]
